FAERS Safety Report 5393202-1 (Version None)
Quarter: 2007Q3

REPORT INFORMATION
  Report Type: 
  Country: None (occurrence: None)
  Receive Date: 20070718
  Receipt Date: 20061020
  Transmission Date: 20080115
  Serious: Yes (Hospitalization)
  Sender: FDA-Public Use
  Company Number: 2006071715

PATIENT
  Age: 57 Year
  Sex: Male
  Weight: 65.7716 kg

DRUGS (4)
  1. CELEBREX [Suspect]
     Indication: BACK PAIN
     Dosage: 200 MG (200 MG, 1 IN 1 D)
     Dates: start: 20010701
  2. VIOXX [Concomitant]
  3. ASPIRIN [Concomitant]
  4. PERCOCET [Concomitant]

REACTIONS (2)
  - CEREBROVASCULAR ACCIDENT [None]
  - MYOCARDIAL INFARCTION [None]
